FAERS Safety Report 7024706-3 (Version None)
Quarter: 2010Q4

REPORT INFORMATION
  Report Type: 
  Country: None (occurrence: None)
  Receive Date: 20101001
  Receipt Date: 20100920
  Transmission Date: 20110411
  Serious: Yes (Other)
  Sender: FDA-Public Use
  Company Number: US-PFIZER INC-2010119844

PATIENT
  Sex: Male
  Weight: 92.063 kg

DRUGS (3)
  1. VIAGRA [Suspect]
     Indication: ERECTILE DYSFUNCTION
     Dosage: 25 MG, AS NEEDED
     Route: 048
     Dates: start: 20000101
  2. CARVEDILOL [Concomitant]
     Indication: HYPERTENSION
     Dosage: 12.5 MG, 2X/DAY
  3. SIMVASTATIN [Concomitant]
     Indication: HYPERTENSION
     Dosage: 40 MG, DAILY

REACTIONS (1)
  - CONVULSION [None]
